FAERS Safety Report 20544092 (Version 2)
Quarter: 2022Q2

REPORT INFORMATION
  Report Type: Report from Study
  Country: CA (occurrence: CA)
  Receive Date: 20220303
  Receipt Date: 20220506
  Transmission Date: 20220721
  Serious: Yes (Hospitalization)
  Sender: FDA-Public Use
  Company Number: CA-BIOGEN-2022BI01101584

PATIENT
  Age: 59 Year
  Sex: Male

DRUGS (2)
  1. DALFAMPRIDINE [Suspect]
     Active Substance: DALFAMPRIDINE
     Indication: Relapsing-remitting multiple sclerosis
     Route: 048
     Dates: start: 20150603, end: 202108
  2. DALFAMPRIDINE [Suspect]
     Active Substance: DALFAMPRIDINE
     Route: 048

REACTIONS (2)
  - Fall [Recovered/Resolved]
  - Lower limb fracture [Recovered/Resolved]

NARRATIVE: CASE EVENT DATE: 20210801
